FAERS Safety Report 7339036-X (Version None)
Quarter: 2011Q1

REPORT INFORMATION
  Report Type: 
  Country: None (occurrence: None)
  Receive Date: 20110308
  Receipt Date: 20110223
  Transmission Date: 20110831
  Serious: Yes (Hospitalization)
  Sender: FDA-Public Use
  Company Number: FR-ELI_LILLY_AND_COMPANY-FR201103000132

PATIENT
  Sex: Male

DRUGS (11)
  1. PROSCAR [Concomitant]
     Dates: start: 20060101
  2. CYMBALTA [Suspect]
     Dosage: 30 MG, DAILY (1/D)
     Route: 048
     Dates: start: 20100602
  3. VELCADE [Concomitant]
     Indication: WALDENSTROM'S MACROGLOBULINAEMIA
     Dates: start: 20100401, end: 20100601
  4. RIVOTRIL [Concomitant]
     Dates: start: 20100601
  5. ZELITREX [Concomitant]
     Dates: start: 20060101
  6. OMIX [Concomitant]
     Dates: start: 20060101
  7. CAPTOPRIL AND HYDROCHLOROTHIAZIDE [Concomitant]
     Dates: start: 20060101
  8. TAHOR [Concomitant]
  9. PLAVIX [Concomitant]
  10. CYMBALTA [Suspect]
     Dosage: 60 MG, UNKNOWN
     Route: 048
     Dates: end: 20100617
  11. LYRICA [Concomitant]
     Dosage: 50 MG, 2/D
     Dates: start: 20100611, end: 20100617

REACTIONS (3)
  - INAPPROPRIATE ANTIDIURETIC HORMONE SECRETION [None]
  - NEUROPATHY PERIPHERAL [None]
  - HYPONATRAEMIA [None]
